FAERS Safety Report 10028033 (Version 1)
Quarter: 2014Q1

REPORT INFORMATION
  Report Type: Report from Study
  Country: US (occurrence: None)
  Receive Date: 20140304
  Receipt Date: 20140304
  Transmission Date: 20141002
  Serious: Yes (Other)
  Sender: FDA-Public Use
  Company Number: 2013SA096382

PATIENT
  Age: 47 Year
  Sex: Female

DRUGS (1)
  1. AUBAGIO [Suspect]
     Indication: MULTIPLE SCLEROSIS
     Dosage: 14 MILLIGRAM (S); UNKNOWN; ORAL
     Route: 048
     Dates: start: 20130918

REACTIONS (10)
  - Spinal cord injury [None]
  - Paraesthesia [None]
  - Heart rate irregular [None]
  - Fatigue [None]
  - Hypoaesthesia [None]
  - Chills [None]
  - Burning sensation [None]
  - Hypersensitivity [None]
  - Alopecia [None]
  - Diarrhoea [None]
